FAERS Safety Report 14366689 (Version 1)
Quarter: 2018Q1

REPORT INFORMATION
  Report Type: Not Available
  Country: US (occurrence: US)
  Receive Date: 20180109
  Receipt Date: 20180109
  Transmission Date: 20180509
  Serious: Yes (Hospitalization)
  Sender: FDA-Public Use
  Company Number: US-NEUROCRINE BIOSCIENCES INC.-2017NBI02099

PATIENT
  Age: 64 Year
  Sex: Male

DRUGS (18)
  1. LATUDA [Concomitant]
     Active Substance: LURASIDONE HYDROCHLORIDE
  2. OMEPRAZOLE. [Concomitant]
     Active Substance: OMEPRAZOLE
  3. SIMVASTATIN. [Concomitant]
     Active Substance: SIMVASTATIN
  4. BENZTROPINE. [Concomitant]
     Active Substance: BENZTROPINE
  5. CEROVITE [Concomitant]
     Active Substance: FOLIC ACID\IRON
  6. INGREZZA [Suspect]
     Active Substance: VALBENAZINE
     Indication: PRODUCT USED FOR UNKNOWN INDICATION
     Route: 048
     Dates: start: 20171024, end: 20171030
  7. METOPROLOL. [Concomitant]
     Active Substance: METOPROLOL
  8. MIRTAZAPINE. [Concomitant]
     Active Substance: MIRTAZAPINE
  9. ZEASORB-AF [Concomitant]
  10. NITROSTAT [Concomitant]
     Active Substance: NITROGLYCERIN
  11. PAROXETINE. [Concomitant]
     Active Substance: PAROXETINE
  12. INGREZZA [Suspect]
     Active Substance: VALBENAZINE
     Route: 048
     Dates: start: 20171031
  13. QUETIAPINE. [Concomitant]
     Active Substance: QUETIAPINE
  14. ASPIRIN EC [Concomitant]
     Active Substance: ASPIRIN
  15. OLANZAPINE. [Concomitant]
     Active Substance: OLANZAPINE
  16. MILK OF MAGNESIA [Concomitant]
     Active Substance: MAGNESIUM HYDROXIDE
  17. PROCHLORPERAZINE. [Concomitant]
     Active Substance: PROCHLORPERAZINE
  18. DOCUSATE [Concomitant]
     Active Substance: DOCUSATE

REACTIONS (1)
  - Fall [Unknown]

NARRATIVE: CASE EVENT DATE: 20171224
